FAERS Safety Report 9129315 (Version 1)
Quarter: 2013Q1

REPORT INFORMATION
  Report Type: Spontaneous
  Country: AU (occurrence: AU)
  Receive Date: 20130125
  Receipt Date: 20130125
  Transmission Date: 20140127
  Serious: Yes (Other)
  Sender: FDA-Public Use
  Company Number: AU-ROCHE-1182198

PATIENT
  Age: 57 Year
  Sex: Male

DRUGS (1)
  1. MYCOPHENOLATE MOFETIL [Suspect]
     Indication: PRODUCT USED FOR UNKNOWN INDICATION
     Route: 048
     Dates: start: 20070924, end: 20070926

REACTIONS (4)
  - Nausea [Unknown]
  - Faecal vomiting [Unknown]
  - Decreased appetite [Unknown]
  - Intestinal obstruction [Unknown]
